APPROVED DRUG PRODUCT: DULOXETINE HYDROCHLORIDE
Active Ingredient: DULOXETINE HYDROCHLORIDE
Strength: EQ 20MG BASE
Dosage Form/Route: CAPSULE, DELAYED REL PELLETS;ORAL
Application: A090694 | Product #001 | TE Code: AB
Applicant: LUPIN LTD
Approved: Dec 11, 2013 | RLD: No | RS: No | Type: RX